FAERS Safety Report 8595418-X (Version None)
Quarter: 2012Q3

REPORT INFORMATION
  Report Type: 
  Country: None (occurrence: None)
  Receive Date: 20120815
  Receipt Date: 20120607
  Transmission Date: 20120928
  Serious: No
  Sender: FDA-Public Use
  Company Number: US-BRISTOL-MYERS SQUIBB COMPANY-16671224

PATIENT
  Sex: Female

DRUGS (1)
  1. ONGLYZA [Suspect]
     Route: 048
     Dates: start: 20120501

REACTIONS (1)
  - DYSGEUSIA [None]
